FAERS Safety Report 15743930 (Version 1)
Quarter: 2018Q4

REPORT INFORMATION
  Report Type: Spontaneous
  Country: US (occurrence: US)
  Receive Date: 20181219
  Receipt Date: 20181219
  Transmission Date: 20190205
  Serious: No
  Sender: FDA-Public Use
  Company Number: None

PATIENT
  Age: 11 Year
  Sex: Female
  Weight: 45 kg

DRUGS (1)
  1. EQUATE IBUPROFEN CHILDRENS [Suspect]
     Active Substance: IBUPROFEN
     Indication: PAIN
     Dosage: QUANTITY:15 TEASPOON(S);?
     Route: 048
     Dates: start: 20181218, end: 20181218

REACTIONS (3)
  - Recalled product [None]
  - Vomiting [None]
  - Dyspnoea [None]

NARRATIVE: CASE EVENT DATE: 20181218
